FAERS Safety Report 5243675-X (Version None)
Quarter: 2007Q1

REPORT INFORMATION
  Report Type: 
  Country: None (occurrence: None)
  Receive Date: 20070220
  Receipt Date: 20070220
  Transmission Date: 20070707
  Serious: Yes (Hospitalization)
  Sender: FDA-Public Use
  Company Number: None

PATIENT
  Age: 37 Year
  Sex: Male
  Weight: 201 kg

DRUGS (1)
  1. TOPAMAX [Suspect]
     Indication: CONVULSION
     Dosage: BID PO
     Route: 048
     Dates: start: 20070120, end: 20070216

REACTIONS (4)
  - ASTHENIA [None]
  - BRADYCARDIA [None]
  - HEART RATE INCREASED [None]
  - PRESYNCOPE [None]
